FAERS Safety Report 13559762 (Version 3)
Quarter: 2017Q2

REPORT INFORMATION
  Report Type: Spontaneous
  Country: IT (occurrence: IT)
  Receive Date: 20170518
  Receipt Date: 20170602
  Transmission Date: 20170830
  Serious: Yes (Other)
  Sender: FDA-Public Use
  Company Number: PHHY2017IT067864

PATIENT
  Age: 52 Year
  Sex: Female
  Weight: 48 kg

DRUGS (3)
  1. ZARZIO [Suspect]
     Active Substance: FILGRASTIM
     Indication: PROPHYLAXIS
     Dosage: 30 U, QD
     Route: 058
     Dates: start: 20160131, end: 20160204
  2. DOXORUBICIN [Concomitant]
     Active Substance: DOXORUBICIN
     Indication: BREAST CANCER
     Dosage: 86 MG, UNK
     Route: 042
     Dates: start: 20160129, end: 20160129
  3. CYCLOPHOSPHAMIDE. [Concomitant]
     Active Substance: CYCLOPHOSPHAMIDE
     Indication: BREAST CANCER
     Dosage: 864 MG, UNK
     Route: 042

REACTIONS (2)
  - Herpes zoster [Recovered/Resolved with Sequelae]
  - Neutropenia [Recovered/Resolved with Sequelae]

NARRATIVE: CASE EVENT DATE: 20160208
